FAERS Safety Report 9298395 (Version 2)
Quarter: 2013Q2

REPORT INFORMATION
  Report Type: Spontaneous
  Country: US (occurrence: US)
  Receive Date: 20130520
  Receipt Date: 20130627
  Transmission Date: 20140414
  Serious: Yes (Other)
  Sender: FDA-Public Use
  Company Number: US-PFIZER INC-2013151425

PATIENT
  Age: 57 Year
  Sex: Female

DRUGS (19)
  1. LIPITOR [Suspect]
     Dosage: 40 MG, 1X/DAY
     Route: 048
  2. CLEOCIN [Suspect]
     Dosage: UNK, 2X/DAY
     Route: 061
  3. DIFLUCAN [Suspect]
     Dosage: 200 MG, 1X/DAY
     Route: 048
  4. KLOR-CON [Concomitant]
     Dosage: UNK
  5. LASIX [Concomitant]
     Dosage: UNK
  6. VERAPAMIL [Concomitant]
     Dosage: UNK
  7. ATACAND [Concomitant]
     Dosage: UNK
  8. NEXIUM [Concomitant]
     Dosage: UNK
  9. FLEXERIL [Concomitant]
     Dosage: UNK
  10. GABAPENTIN [Concomitant]
     Dosage: UNK
  11. VIMOVO [Concomitant]
     Dosage: UNK
  12. PROVENTIL INHALER [Concomitant]
     Dosage: UNK
  13. SINGULAIR [Concomitant]
     Dosage: UNK
  14. RHINOCORT [Concomitant]
     Dosage: UNK
  15. ASPIRIN [Concomitant]
     Dosage: UNK
  16. VITAMIN D [Concomitant]
     Dosage: UNK
  17. BABY ASPIRIN [Concomitant]
     Dosage: UNK
  18. CALCIUM [Concomitant]
     Dosage: UNK
  19. MIRALAX [Concomitant]
     Dosage: UNK

REACTIONS (3)
  - Limb injury [Recovered/Resolved]
  - Accident at work [Recovered/Resolved]
  - Carpal tunnel syndrome [Recovered/Resolved]
